FAERS Safety Report 5478997-0 (Version None)
Quarter: 2007Q4

REPORT INFORMATION
  Report Type: 
  Country: None (occurrence: None)
  Receive Date: 20071006
  Receipt Date: 20070925
  Transmission Date: 20080405
  Serious: Yes (Disabling)
  Sender: FDA-Public Use
  Company Number: PT-PFIZER INC-2007077950

PATIENT
  Sex: Female

DRUGS (1)
  1. CHAMPIX [Suspect]
     Indication: SMOKING CESSATION THERAPY
     Route: 048

REACTIONS (7)
  - AGGRESSION [None]
  - GENERALISED OEDEMA [None]
  - MOOD ALTERED [None]
  - MOTOR DYSFUNCTION [None]
  - MYALGIA [None]
  - PERIPHERAL VASCULAR DISORDER [None]
  - SPEECH DISORDER [None]
